FAERS Safety Report 5215963-4 (Version None)
Quarter: 2007Q1

REPORT INFORMATION
  Report Type: 
  Country: None (occurrence: None)
  Receive Date: 20070123
  Receipt Date: 20070118
  Transmission Date: 20070707
  Serious: Yes (Other)
  Sender: FDA-Public Use
  Company Number: FR-BRISTOL-MYERS SQUIBB COMPANY-13649900

PATIENT

DRUGS (1)
  1. SPRYCEL [Suspect]
     Route: 048

REACTIONS (1)
  - ENCEPHALOPATHY [None]
